FAERS Safety Report 6896913-1 (Version None)
Quarter: 2010Q3

REPORT INFORMATION
  Report Type: 
  Country: None (occurrence: None)
  Receive Date: 20100802
  Receipt Date: 20070223
  Transmission Date: 20110219
  Serious: Yes (Disabling, Other)
  Sender: FDA-Public Use
  Company Number: US-PFIZER INC-2007014763

PATIENT
  Age: 42 Year
  Sex: Female

DRUGS (6)
  1. LYRICA [Suspect]
     Indication: HYPOAESTHESIA
     Dates: start: 20060101, end: 20061201
  2. MORPHINE [Concomitant]
  3. PERCOCET [Concomitant]
  4. VISUDYNE [Concomitant]
  5. DILAUDID [Concomitant]
  6. PAXIL [Concomitant]

REACTIONS (3)
  - GAIT DISTURBANCE [None]
  - GENERALISED OEDEMA [None]
  - WEIGHT INCREASED [None]
